FAERS Safety Report 21222865 (Version 1)
Quarter: 2022Q3

REPORT INFORMATION
  Report Type: Spontaneous
  Country: FR (occurrence: FR)
  Receive Date: 20220817
  Receipt Date: 20220817
  Transmission Date: 20221027
  Serious: Yes (Other)
  Sender: FDA-Public Use
  Company Number: None

PATIENT
  Age: 48 Year
  Sex: Female
  Weight: 64 kg

DRUGS (2)
  1. DIENOGEST\ESTRADIOL VALERATE [Interacting]
     Active Substance: DIENOGEST\ESTRADIOL VALERATE
     Dosage: UNK
  2. SPIKEVAX [Interacting]
     Active Substance: ELASOMERAN
     Indication: COVID-19 immunisation
     Dosage: 0.5 ML, ONCE
     Route: 030
     Dates: start: 20211213, end: 20211213

REACTIONS (4)
  - Premenstrual syndrome [Not Recovered/Not Resolved]
  - Abnormal withdrawal bleeding [Not Recovered/Not Resolved]
  - Influenza like illness [Recovered/Resolved]
  - Menstruation irregular [Not Recovered/Not Resolved]

NARRATIVE: CASE EVENT DATE: 20211201
